FAERS Safety Report 25112699 (Version 1)
Quarter: 2025Q1

REPORT INFORMATION
  Report Type: Report from Study
  Country: US (occurrence: US)
  Receive Date: 20250324
  Receipt Date: 20250324
  Transmission Date: 20250409
  Serious: Yes (Other)
  Sender: INCYTE
  Company Number: US-EVENT-002126

PATIENT

DRUGS (2)
  1. JAKAFI [Suspect]
     Active Substance: RUXOLITINIB
     Indication: Chronic graft versus host disease
     Dosage: 5 MILLIGRAM, BID
     Route: 065
  2. PREDNISONE [Suspect]
     Active Substance: PREDNISONE
     Route: 065

REACTIONS (10)
  - Steroid withdrawal syndrome [Unknown]
  - Respiratory disorder [Unknown]
  - Photosensitivity reaction [Unknown]
  - Temperature intolerance [Unknown]
  - Hypersensitivity [Unknown]
  - Osteoarthritis [Unknown]
  - Hypertension [Unknown]
  - Vomiting [Unknown]
  - Fatigue [Unknown]
  - Diarrhoea [Unknown]
